FAERS Safety Report 6794145-9 (Version None)
Quarter: 2010Q2

REPORT INFORMATION
  Report Type: 
  Country: None (occurrence: None)
  Receive Date: 20100624
  Receipt Date: 20080403
  Transmission Date: 20101027
  Serious: No
  Sender: FDA-Public Use
  Company Number: US-PFIZER INC-ENC200800069

PATIENT
  Age: 81 Year
  Sex: Female

DRUGS (2)
  1. ARGATROBAN [Suspect]
     Indication: HEPARIN-INDUCED THROMBOCYTOPENIA
     Route: 042
     Dates: end: 20080328
  2. WARFARIN SODIUM [Concomitant]

REACTIONS (1)
  - COAGULATION TIME PROLONGED [None]
